FAERS Safety Report 19768097 (Version 1)
Quarter: 2021Q3

REPORT INFORMATION
  Report Type: Spontaneous
  Country: GB (occurrence: GB)
  Receive Date: 20210831
  Receipt Date: 20210831
  Transmission Date: 20211014
  Serious: Yes (Other)
  Sender: FDA-Public Use
  Company Number: GB-GLAXOSMITHKLINE-GB2021EME182654

PATIENT
  Sex: Female

DRUGS (1)
  1. MEPOLIZUMAB [Suspect]
     Active Substance: MEPOLIZUMAB
     Indication: PRODUCT USED FOR UNKNOWN INDICATION
     Dosage: 100 MG, Z EVERY 4 WEEKS
     Route: 058

REACTIONS (4)
  - Injury [Unknown]
  - Anxiety [Unknown]
  - Suicide attempt [Unknown]
  - Flashback [Unknown]

NARRATIVE: CASE EVENT DATE: 2021
